FAERS Safety Report 7368947-4 (Version None)
Quarter: 2011Q1

REPORT INFORMATION
  Report Type: 
  Country: None (occurrence: None)
  Receive Date: 20110323
  Receipt Date: 20110310
  Transmission Date: 20110831
  Serious: Yes (Other)
  Sender: FDA-Public Use
  Company Number: US-JNJFOC-20110204858

PATIENT
  Sex: Male
  Weight: 74.84 kg

DRUGS (4)
  1. METHOTREXATE [Concomitant]
     Dosage: WEEKLY
     Route: 050
  2. METHOTREXATE [Concomitant]
     Indication: PSORIATIC ARTHROPATHY
     Dosage: WEEKLY
     Route: 048
  3. ARAVA [Suspect]
     Indication: IMMUNOSUPPRESSION
     Route: 048
  4. REMICADE [Suspect]
     Indication: PSORIATIC ARTHROPATHY
     Route: 042

REACTIONS (2)
  - PLEURAL EFFUSION [None]
  - BLOOD ALKALINE PHOSPHATASE INCREASED [None]
